FAERS Safety Report 24401646 (Version 2)
Quarter: 2025Q1

REPORT INFORMATION
  Report Type: Spontaneous
  Country: CA (occurrence: CA)
  Receive Date: 20241007
  Receipt Date: 20250212
  Transmission Date: 20250408
  Serious: Yes (Death, Life-Threatening, Hospitalization, Other)
  Sender: AUROBINDO
  Company Number: CA-AUROBINDO-AUR-APL-2024-048018

PATIENT
  Age: 82 Year
  Sex: Female

DRUGS (2)
  1. MEROPENEM [Suspect]
     Active Substance: MEROPENEM
     Indication: Escherichia infection
     Dosage: 500 MILLIGRAM, FOUR TIMES/DAY
     Route: 065
  2. CEFTRIAXONE [Concomitant]
     Active Substance: CEFTRIAXONE
     Indication: Infection
     Route: 042

REACTIONS (6)
  - Septic shock [Fatal]
  - Haemodynamic instability [Fatal]
  - Hypotension [Fatal]
  - Bradycardia [Fatal]
  - Dysarthria [Fatal]
  - Depressed level of consciousness [Fatal]
